FAERS Safety Report 6135747-2 (Version None)
Quarter: 2009Q1

REPORT INFORMATION
  Report Type: 
  Country: None (occurrence: None)
  Receive Date: 20090327
  Receipt Date: 20090320
  Transmission Date: 20090719
  Serious: Yes (Death, Hospitalization, Other)
  Sender: FDA-Public Use
  Company Number: PHHO2009BR03972

PATIENT
  Sex: Female
  Weight: 65 kg

DRUGS (1)
  1. TASIGNA [Suspect]
     Indication: CHRONIC MYELOID LEUKAEMIA
     Dosage: 800MG/DAY
     Route: 048
     Dates: start: 20090126

REACTIONS (14)
  - BONE PAIN [None]
  - CARDIAC ARREST [None]
  - CHRONIC MYELOID LEUKAEMIA [None]
  - DRUG INEFFECTIVE [None]
  - DYSPNOEA [None]
  - GINGIVAL BLEEDING [None]
  - HAEMOGLOBIN ABNORMAL [None]
  - HYPERHIDROSIS [None]
  - HYPOTENSION [None]
  - PLATELET DISORDER [None]
  - PYREXIA [None]
  - SEPTIC SHOCK [None]
  - SPLENOMEGALY [None]
  - WEIGHT DECREASED [None]
